FAERS Safety Report 15902112 (Version 1)
Quarter: 2019Q1

REPORT INFORMATION
  Report Type: Spontaneous
  Country: CO (occurrence: CO)
  Receive Date: 20190201
  Receipt Date: 20190201
  Transmission Date: 20190417
  Serious: Yes (Other)
  Sender: FDA-Public Use
  Company Number: CO-ALLERGAN-1904753US

PATIENT
  Age: 73 Year
  Sex: Male

DRUGS (11)
  1. CEFTAROLINE FOSAMIL - BP [Suspect]
     Active Substance: CEFTAROLINE FOSAMIL
     Indication: ENDOCARDITIS
     Dosage: UNK
     Route: 042
     Dates: start: 20180829, end: 201809
  2. CEFTAROLINE FOSAMIL - BP [Suspect]
     Active Substance: CEFTAROLINE FOSAMIL
     Indication: SYSTEMIC INFLAMMATORY RESPONSE SYNDROME
  3. CEFTAROLINE FOSAMIL - BP [Suspect]
     Active Substance: CEFTAROLINE FOSAMIL
     Indication: ACUTE KIDNEY INJURY
  4. FLUCONAZOLE. [Suspect]
     Active Substance: FLUCONAZOLE
     Indication: ACUTE KIDNEY INJURY
  5. CUBICIN [Suspect]
     Active Substance: DAPTOMYCIN
     Indication: ENDOCARDITIS
     Dosage: 6 MG/KG, UNK
     Route: 042
     Dates: start: 20180829, end: 201809
  6. FLUCONAZOLE. [Suspect]
     Active Substance: FLUCONAZOLE
     Indication: ENDOCARDITIS
     Dosage: UNK
     Route: 065
     Dates: start: 20180829, end: 201809
  7. MEROPENEM. [Suspect]
     Active Substance: MEROPENEM
     Indication: ACUTE KIDNEY INJURY
  8. CUBICIN [Suspect]
     Active Substance: DAPTOMYCIN
     Indication: ACUTE KIDNEY INJURY
  9. MEROPENEM. [Suspect]
     Active Substance: MEROPENEM
     Indication: ENDOCARDITIS
     Dosage: UNK
     Route: 042
     Dates: start: 20180829, end: 201809
  10. MEROPENEM. [Suspect]
     Active Substance: MEROPENEM
     Indication: SYSTEMIC INFLAMMATORY RESPONSE SYNDROME
  11. FLUCONAZOLE. [Suspect]
     Active Substance: FLUCONAZOLE
     Indication: SYSTEMIC INFLAMMATORY RESPONSE SYNDROME

REACTIONS (2)
  - Rhabdomyolysis [Unknown]
  - Product use in unapproved indication [Unknown]

NARRATIVE: CASE EVENT DATE: 20180915
